FAERS Safety Report 18781536 (Version 2)
Quarter: 2021Q1

REPORT INFORMATION
  Report Type: Spontaneous
  Country: BE (occurrence: BE)
  Receive Date: 20210125
  Receipt Date: 20210215
  Transmission Date: 20210419
  Serious: Yes (Other)
  Sender: FDA-Public Use
  Company Number: BE-ROCHE-2755721

PATIENT
  Age: 16 Year
  Sex: Female

DRUGS (7)
  1. ROACTEMRA [Suspect]
     Active Substance: TOCILIZUMAB
     Indication: JUVENILE IDIOPATHIC ARTHRITIS
     Route: 058
     Dates: start: 202003
  2. GENOTONORM [Concomitant]
     Active Substance: SOMATROPIN
  3. PREDNISOLONE. [Concomitant]
     Active Substance: PREDNISOLONE
  4. ETANERCEPT [Concomitant]
     Active Substance: ETANERCEPT
  5. DECAPEPTYL [Concomitant]
  6. METHOTREXATE. [Concomitant]
     Active Substance: METHOTREXATE
  7. ROACTEMRA [Suspect]
     Active Substance: TOCILIZUMAB
     Indication: JUVENILE IDIOPATHIC ARTHRITIS
     Dosage: 12 THEN 8 MG/KG/2 WEEKS IV
     Route: 042
     Dates: start: 201104

REACTIONS (1)
  - Temporal lobe epilepsy [Not Recovered/Not Resolved]

NARRATIVE: CASE EVENT DATE: 201904
